FAERS Safety Report 24284892 (Version 2)
Quarter: 2024Q3

REPORT INFORMATION
  Report Type: Spontaneous
  Country: US (occurrence: US)
  Receive Date: 20240905
  Receipt Date: 20240910
  Transmission Date: 20241017
  Serious: No
  Sender: ROCHE
  Company Number: US-ROCHE-10000071803

PATIENT
  Age: 63 Year
  Sex: Male

DRUGS (5)
  1. CELLCEPT [Suspect]
     Active Substance: MYCOPHENOLATE MOFETIL
     Indication: Product used for unknown indication
     Route: 065
     Dates: start: 2024
  2. TYVASO DPI [Suspect]
     Active Substance: TREPROSTINIL
     Indication: Pulmonary arterial hypertension
     Route: 055
     Dates: start: 202407
  3. TYVASO DPI [Suspect]
     Active Substance: TREPROSTINIL
     Route: 055
  4. TYVASO DPI [Suspect]
     Active Substance: TREPROSTINIL
     Route: 055
     Dates: start: 2024
  5. MYCOPHENOLATE SODIUM [Suspect]
     Active Substance: MYCOPHENOLATE SODIUM
     Indication: Product used for unknown indication
     Route: 065

REACTIONS (11)
  - Dyspnoea exertional [Unknown]
  - Fatigue [Unknown]
  - Oedema peripheral [Unknown]
  - Dyspnoea [Not Recovered/Not Resolved]
  - Dizziness [Unknown]
  - Headache [Unknown]
  - Hypotension [Unknown]
  - Throat irritation [Unknown]
  - Epistaxis [Unknown]
  - Cough [Not Recovered/Not Resolved]
  - Diarrhoea [Unknown]
